FAERS Safety Report 12367055 (Version 5)
Quarter: 2020Q1

REPORT INFORMATION
  Report Type: Spontaneous
  Country: JP (occurrence: JP)
  Receive Date: 20160513
  Receipt Date: 20200221
  Transmission Date: 20200409
  Serious: Yes (Hospitalization, Other)
  Sender: FDA-Public Use
  Company Number: JP-HORIZON-BUP-0056-2016

PATIENT
  Age: 28 Year
  Sex: Male
  Weight: 65.3 kg

DRUGS (3)
  1. ARGI-U [Concomitant]
     Indication: ORNITHINE TRANSCARBAMOYLASE DEFICIENCY
     Dosage: 8 G/8 HOURS
     Route: 048
  2. BUPHENYL [Suspect]
     Active Substance: SODIUM PHENYLBUTYRATE
     Indication: ORNITHINE TRANSCARBAMOYLASE DEFICIENCY
     Dosage: 5 DF/8 HOURS 08-DEC-2015 TILL 07-MAR-2016; 7 DF/8 HOURS FROM 08-MAR-2016
     Route: 048
     Dates: start: 20151208
  3. ARGI-U [Concomitant]
     Indication: ORNITHINE TRANSCARBAMOYLASE DEFICIENCY
     Dosage: 20G DAILY FROM 26-MAR-2016 TILL 30-MAR-2016; 200ML ON 27-JUL-2018 (COMPLETED);
     Route: 041

REACTIONS (6)
  - Hyperammonaemia [Recovered/Resolved]
  - Hyperammonaemia [Recovered/Resolved]
  - Hyperammonaemia [Recovered/Resolved]
  - Hyperammonaemia [Recovered/Resolved]
  - Hyperammonaemia [Recovered/Resolved]
  - Hyperammonaemia [Recovered/Resolved]

NARRATIVE: CASE EVENT DATE: 20160209
